FAERS Safety Report 9753114 (Version 1)
Quarter: 2013Q4

REPORT INFORMATION
  Report Type: Spontaneous
  Country: US (occurrence: US)
  Receive Date: 20131213
  Receipt Date: 20131213
  Transmission Date: 20140711
  Serious: No
  Sender: FDA-Public Use
  Company Number: US-GILEAD-2010-0026924

PATIENT
  Age: 45 Year
  Sex: Male
  Weight: 67.13 kg

DRUGS (10)
  1. LETAIRIS [Suspect]
     Indication: PULMONARY ARTERIAL HYPERTENSION
     Route: 048
     Dates: start: 20090601, end: 20100116
  2. REVATIO [Suspect]
     Indication: PULMONARY ARTERIAL HYPERTENSION
     Dates: start: 20090929, end: 20100116
  3. ALLOPURINOL [Suspect]
  4. FLOLAN [Suspect]
  5. COUMADIN [Concomitant]
  6. PROTONIX [Concomitant]
  7. LASIX [Concomitant]
  8. ASTELIN NASA [Concomitant]
  9. GABAPENTIN [Concomitant]
  10. ADVAIR DISKUS [Concomitant]

REACTIONS (2)
  - Oral mucosal blistering [Recovering/Resolving]
  - Urticaria [Recovering/Resolving]
